FAERS Safety Report 7767990-0 (Version None)
Quarter: 2011Q3

REPORT INFORMATION
  Report Type: 
  Country: None (occurrence: None)
  Receive Date: 20110922
  Receipt Date: 20101207
  Transmission Date: 20111222
  Serious: No
  Sender: FDA-Public Use
  Company Number: US-ASTRAZENECA-2010SE57876

PATIENT
  Sex: Male
  Weight: 104.3 kg

DRUGS (4)
  1. SEROQUEL [Suspect]
     Indication: ANXIETY
     Dosage: 25-50 MG
     Route: 048
  2. KLONOPIN [Concomitant]
  3. SEROQUEL [Suspect]
     Indication: DEPRESSION
     Dosage: 25-50 MG
     Route: 048
  4. XANAX [Concomitant]

REACTIONS (3)
  - DYSARTHRIA [None]
  - FEELING ABNORMAL [None]
  - SOMNOLENCE [None]
